FAERS Safety Report 9413778 (Version 2)
Quarter: 2013Q3

REPORT INFORMATION
  Report Type: Spontaneous
  Country: JP (occurrence: JP)
  Receive Date: 20130723
  Receipt Date: 20130805
  Transmission Date: 20140515
  Serious: Yes (Other)
  Sender: FDA-Public Use
  Company Number: JP-PFIZER INC-2013209322

PATIENT
  Age: 82 Year
  Sex: Male

DRUGS (5)
  1. HYDROCORTISONE [Suspect]
     Indication: RENAL IMPAIRMENT
     Dosage: 10 MG, 1X/DAY
     Route: 048
  2. HYDROCORTISONE [Suspect]
     Indication: RENAL IMPAIRMENT
     Dosage: 100 ML, 1X/DAY
     Route: 042
  3. HYDROCORTISONE [Suspect]
     Dosage: 40 MG, 1X/DAY
     Route: 042
  4. PROTON PUMP INHIBITORS [Concomitant]
     Indication: COLITIS ULCERATIVE
     Dosage: 20 MG, 1X/DAY
     Route: 048
  5. ASPIRIN [Concomitant]
     Dosage: 100 MG, 1X/DAY
     Route: 048

REACTIONS (1)
  - Cytomegalovirus enterocolitis [Recovering/Resolving]
